FAERS Safety Report 16652728 (Version 1)
Quarter: 2019Q3

REPORT INFORMATION
  Report Type: Report from Study
  Country: BO (occurrence: BO)
  Receive Date: 20190731
  Receipt Date: 20190731
  Transmission Date: 20191004
  Serious: Yes (Hospitalization)
  Sender: FDA-Public Use
  Company Number: PHHY2016BO027488

PATIENT
  Sex: Female

DRUGS (1)
  1. GLIVEC [Suspect]
     Active Substance: IMATINIB MESYLATE
     Indication: CHRONIC MYELOID LEUKAEMIA
     Dosage: 300 MG (3 OF 100 MG), UNK
     Route: 065

REACTIONS (5)
  - White blood cell count decreased [Unknown]
  - Stomach mass [Unknown]
  - White blood cell count increased [Unknown]
  - Dyspepsia [Unknown]
  - Pneumonia [Unknown]
